FAERS Safety Report 15058634 (Version 2)
Quarter: 2018Q3

REPORT INFORMATION
  Report Type: Spontaneous
  Country: US (occurrence: US)
  Receive Date: 20180625
  Receipt Date: 20180819
  Transmission Date: 20181010
  Serious: Yes (Death, Hospitalization, Other)
  Sender: FDA-Public Use
  Company Number: US-009507513-1806USA008594

PATIENT
  Age: 76 Year
  Sex: Female

DRUGS (3)
  1. ALIMTA [Concomitant]
     Active Substance: PEMETREXED DISODIUM
     Dosage: UNK
  2. CARBOPLATIN. [Concomitant]
     Active Substance: CARBOPLATIN
     Dosage: UNK
  3. KEYTRUDA [Suspect]
     Active Substance: PEMBROLIZUMAB
     Indication: NON-SMALL CELL LUNG CANCER METASTATIC
     Dosage: 200 MG EVERY 3 WEEKS
     Route: 042
     Dates: start: 20180516, end: 20180516

REACTIONS (7)
  - Cerebrovascular accident [Unknown]
  - Sepsis [Unknown]
  - Neutropenia [Unknown]
  - Death [Fatal]
  - Stomatitis [Unknown]
  - Adverse event [Unknown]
  - Somnolence [Unknown]

NARRATIVE: CASE EVENT DATE: 2018
